FAERS Safety Report 4372298-X (Version None)
Quarter: 2004Q2

REPORT INFORMATION
  Report Type: 
  Country: None (occurrence: None)
  Receive Date: 20040602
  Receipt Date: 20040521
  Transmission Date: 20050107
  Serious: Yes (Other)
  Sender: FDA-Public Use
  Company Number: GB-JNJFOC-20040505442

PATIENT
  Sex: Male

DRUGS (2)
  1. RISPERDAL CONSTA [Suspect]
     Indication: PSYCHOTIC DISORDER
     Dosage: 37.5 MG, 1 IN 14 DAY, INTRA-MUSCULAR
     Route: 030
  2. RISPERDAL [Suspect]
     Indication: PSYCHOTIC DISORDER
     Dosage: 4 MG, ORAL
     Route: 048

REACTIONS (2)
  - DRUG INTERACTION [None]
  - NEUTROPENIA [None]
